FAERS Safety Report 8898042 (Version 1)
Quarter: 2012Q4

REPORT INFORMATION
  Report Type: 
  Country: US (occurrence: US)
  Receive Date: 20121108
  Receipt Date: 20121108
  Transmission Date: 20130627
  Serious: No
  Sender: FDA-Public Use
  Company Number: US-AMGEN-USASP2012030777

PATIENT
  Sex: Female

DRUGS (8)
  1. ENBREL [Suspect]
     Indication: PSORIASIS
     Dosage: 50 mg, qwk
     Route: 058
  2. OXYMORPHONE [Concomitant]
     Dosage: 7.5 mg, UNK
  3. OXYCODONE [Concomitant]
     Dosage: 10 mg, UNK
  4. MELOXICAM [Concomitant]
     Dosage: 7.5 mg, UNK
  5. ZOCOR [Concomitant]
     Dosage: 10 mg, UNK
  6. CYCLOBENZAPRINE [Concomitant]
     Dosage: 5 mg, UNK
  7. SULFASALAZIN [Concomitant]
     Dosage: 500 mg, UNK
  8. PRILOSEC                           /00661201/ [Concomitant]
     Dosage: 10 mg, UNK

REACTIONS (2)
  - Arthralgia [Unknown]
  - Psoriasis [Unknown]
